APPROVED DRUG PRODUCT: PROPOXYPHENE NAPSYLATE AND ACETAMINOPHEN
Active Ingredient: ACETAMINOPHEN; PROPOXYPHENE NAPSYLATE
Strength: 650MG;100MG
Dosage Form/Route: TABLET;ORAL
Application: A070771 | Product #001
Applicant: MUTUAL PHARMACEUTICAL CO INC
Approved: Mar 21, 1986 | RLD: No | RS: No | Type: DISCN